FAERS Safety Report 11730173 (Version 1)
Quarter: 2015Q4

REPORT INFORMATION
  Report Type: Spontaneous
  Country: US (occurrence: None)
  Receive Date: 20151112
  Receipt Date: 20151112
  Transmission Date: 20160304
  Serious: Yes (Death)
  Sender: FDA-Public Use
  Company Number: None

PATIENT
  Age: 30 Year
  Sex: Male

DRUGS (5)
  1. TOBRAMYCIN 300 MG /5 ML TEVA [Suspect]
     Active Substance: TOBRAMYCIN
     Indication: CYSTIC FIBROSIS
     Route: 055
     Dates: start: 20150818, end: 20151105
  2. PULMOZYME [Suspect]
     Active Substance: DORNASE ALFA
     Indication: BRONCHIECTASIS
     Route: 055
     Dates: start: 20150818, end: 20151105
  3. CAYSTON [Concomitant]
     Active Substance: AZTREONAM
  4. TOBRAMYCIN 300 MG /5 ML TEVA [Suspect]
     Active Substance: TOBRAMYCIN
     Indication: BRONCHIECTASIS
     Route: 055
     Dates: start: 20150818, end: 20151105
  5. PULMOZYME [Suspect]
     Active Substance: DORNASE ALFA
     Indication: CYSTIC FIBROSIS
     Route: 055
     Dates: start: 20150818, end: 20151105

REACTIONS (1)
  - Death [None]

NARRATIVE: CASE EVENT DATE: 20151105
